FAERS Safety Report 5055309-8 (Version None)
Quarter: 2006Q3

REPORT INFORMATION
  Report Type: 
  Country: None (occurrence: None)
  Receive Date: 20060714
  Receipt Date: 20060628
  Transmission Date: 20061208
  Serious: Yes (Other)
  Sender: FDA-Public Use
  Company Number: 2006001229

PATIENT
  Age: 67 Year
  Sex: Male

DRUGS (2)
  1. TARCEVA [Suspect]
     Indication: LUNG NEOPLASM MALIGNANT
     Dosage: 100 MG (QD), ORAL
     Route: 048
     Dates: start: 20060101, end: 20060530
  2. PHENYTOIN SODIUM [Concomitant]

REACTIONS (2)
  - FACE OEDEMA [None]
  - VENA CAVA THROMBOSIS [None]
